FAERS Safety Report 9131238 (Version 1)
Quarter: 2013Q1

REPORT INFORMATION
  Report Type: Spontaneous
  Country: US (occurrence: US)
  Receive Date: 20130301
  Receipt Date: 20130301
  Transmission Date: 20140127
  Serious: Yes (Hospitalization)
  Sender: FDA-Public Use
  Company Number: US-SANOFI-AVENTIS-2013SA018207

PATIENT
  Sex: Female

DRUGS (3)
  1. LANTUS SOLOSTAR [Suspect]
     Dosage: GRADUALLY ADDED  1 UNITS A DAY FOR ABOUT A MONTH DOSE:10 UNIT(S)
     Route: 058
     Dates: start: 201212
  2. LANTUS SOLOSTAR [Suspect]
     Dosage: DOSE:30 UNIT(S)
     Route: 058
  3. SOLOSTAR [Suspect]
     Dates: start: 201212

REACTIONS (1)
  - Small intestinal obstruction [Unknown]
